FAERS Safety Report 7803814-0 (Version None)
Quarter: 2011Q4

REPORT INFORMATION
  Report Type: 
  Country: None (occurrence: None)
  Receive Date: 20111010
  Receipt Date: 20111005
  Transmission Date: 20120403
  Serious: Yes (Other)
  Sender: FDA-Public Use
  Company Number: US-PFIZER INC-2011151545

PATIENT
  Age: 37 Year
  Sex: Male

DRUGS (2)
  1. DILANTIN-125 [Suspect]
     Dosage: UNK
  2. PHENYTOIN [Suspect]
     Dosage: UNK

REACTIONS (2)
  - DRUG INEFFECTIVE [None]
  - CONVULSION [None]
